FAERS Safety Report 13603852 (Version 5)
Quarter: 2017Q4

REPORT INFORMATION
  Report Type: Spontaneous
  Country: US (occurrence: US)
  Receive Date: 20170602
  Receipt Date: 20171225
  Transmission Date: 20180320
  Serious: Yes (Other)
  Sender: FDA-Public Use
  Company Number: PHEH2017US016598

PATIENT
  Sex: Female
  Weight: 68.27 kg

DRUGS (2)
  1. ONDANSETRON [Suspect]
     Active Substance: ONDANSETRON
     Indication: PRODUCT USED FOR UNKNOWN INDICATION
     Route: 048
  2. ZOFRAN [Suspect]
     Active Substance: ONDANSETRON HYDROCHLORIDE
     Indication: VOMITING IN PREGNANCY
     Dosage: 08 MG, PRN
     Route: 048
     Dates: start: 20060607, end: 20060624

REACTIONS (16)
  - Product use in unapproved indication [Unknown]
  - Facial bones fracture [Unknown]
  - Kyphosis [Unknown]
  - Panniculitis [Unknown]
  - Cholelithiasis [Unknown]
  - Adenoiditis [Unknown]
  - Cervical radiculopathy [Unknown]
  - Abdominal pain [Unknown]
  - Peptic ulcer [Unknown]
  - Gastrooesophageal reflux disease [Unknown]
  - Injury [Unknown]
  - Neck pain [Unknown]
  - Maternal exposure during pregnancy [Unknown]
  - Emotional distress [Unknown]
  - Rotator cuff syndrome [Unknown]
  - Radiculitis brachial [Unknown]
